FAERS Safety Report 24722961 (Version 1)
Quarter: 2024Q4

REPORT INFORMATION
  Report Type: Spontaneous
  Country: US (occurrence: US)
  Receive Date: 20241211
  Receipt Date: 20241211
  Transmission Date: 20250114
  Serious: No
  Sender: FERRING
  Company Number: US-FERRINGPH-2024FE00546

PATIENT
  Sex: Female

DRUGS (2)
  1. MENOPUR [Suspect]
     Active Substance: FOLLITROPIN\LUTEINIZING HORMONE
     Indication: Product used for unknown indication
     Route: 065
  2. GONAL-F [Concomitant]
     Active Substance: FOLLITROPIN
     Indication: Product used for unknown indication
     Dosage: 350 INTERNATIONAL UNIT
     Route: 065

REACTIONS (2)
  - Nausea [Unknown]
  - Vomiting [Unknown]
